FAERS Safety Report 7265407-6 (Version None)
Quarter: 2011Q1

REPORT INFORMATION
  Report Type: 
  Country: None (occurrence: None)
  Receive Date: 20110131
  Receipt Date: 20110124
  Transmission Date: 20110831
  Serious: Yes (Death, Other)
  Sender: FDA-Public Use
  Company Number: BE-ROCHE-755017

PATIENT

DRUGS (4)
  1. TRASTUZUMAB [Suspect]
     Dosage: ON DAYS 1, 8, AND 15 OF EACH 21 DAYS CYCLE
     Route: 042
  2. TRASTUZUMAB [Suspect]
     Dosage: LOADING DOSE:DAY 1 OF CYCLE 1,IF PATIENT WAS NOT ON TRASTUZUMAB AT STUDY ENTRY
     Route: 042
  3. VINORELBINE [Suspect]
     Route: 042
  4. EVEROLIMUS [Suspect]
     Dosage: STARTING DOSE:5 MG/DAY IN DAILY TREATMENT ARM,30 MG/WEEK IN WEEKLY TREATMENT
     Route: 065

REACTIONS (14)
  - FEBRILE NEUTROPENIA [None]
  - DECREASED APPETITE [None]
  - PNEUMONITIS [None]
  - NEUTROPENIA [None]
  - LEUKOPENIA [None]
  - ANAEMIA [None]
  - PAIN [None]
  - DERMATITIS ACNEIFORM [None]
  - LYMPHOPENIA [None]
  - STOMATITIS [None]
  - GASTROINTESTINAL DISORDER [None]
  - PHARYNGEAL DISORDER [None]
  - PNEUMONIA [None]
  - ASTHENIA [None]
